FAERS Safety Report 24348865 (Version 1)
Quarter: 2024Q3

REPORT INFORMATION
  Report Type: Spontaneous
  Country: AR (occurrence: AR)
  Receive Date: 20240923
  Receipt Date: 20240923
  Transmission Date: 20241016
  Serious: Yes (Hospitalization)
  Sender: SANDOZ
  Company Number: AR-SANDOZ-SDZ2024AR081665

PATIENT
  Sex: Male
  Weight: 37.5 kg

DRUGS (2)
  1. HYDROCORTISONE [Suspect]
     Active Substance: HYDROCORTISONE\HYDROCORTISONE ACETATE
     Indication: Hypopituitarism
     Dosage: HALF TABLET IN THE MORNING, HALF TABLET IN THE AFTERNOON AND A QUARTER OF TABLET AT NIGHT.
     Route: 065
  2. OMNITROPE [Suspect]
     Active Substance: SOMATROPIN
     Indication: Growth hormone deficiency
     Dosage: 0.6 MG FROM MONDAY TO FRIDAY 0.4 MG SATURDAY AND SUNDAY;7 DAYS A WEEK
     Route: 058
     Dates: start: 20230314

REACTIONS (2)
  - Somnolence [Recovered/Resolved]
  - Fatigue [Recovered/Resolved]
